FAERS Safety Report 25765488 (Version 1)
Quarter: 2025Q3

REPORT INFORMATION
  Report Type: Spontaneous
  Country: US (occurrence: US)
  Receive Date: 20250905
  Receipt Date: 20250905
  Transmission Date: 20251021
  Serious: No
  Sender: AUROBINDO
  Company Number: US-AUROBINDO-AUR-APL-2025-004269

PATIENT
  Age: 76 Year
  Sex: Female
  Weight: 51.2 kg

DRUGS (1)
  1. DORZOLAMIDE HYDROCHLORIDE\TIMOLOL MALEATE [Suspect]
     Active Substance: DORZOLAMIDE HYDROCHLORIDE\TIMOLOL MALEATE
     Indication: Glaucoma
     Route: 047
     Dates: start: 20250112

REACTIONS (4)
  - Ocular hyperaemia [Unknown]
  - Discomfort [Unknown]
  - Eye pain [Unknown]
  - Drug ineffective [Unknown]
